FAERS Safety Report 8924286 (Version 1)
Quarter: 2012Q4

REPORT INFORMATION
  Report Type: Report from Study
  Country: AU (occurrence: AU)
  Receive Date: 20121126
  Receipt Date: 20121126
  Transmission Date: 20130627
  Serious: Yes (Disabling)
  Sender: FDA-Public Use
  Company Number: AU-GLAXOSMITHKLINE-B0841394A

PATIENT
  Age: 64 Year
  Sex: Male

DRUGS (1)
  1. AVODART [Suspect]
     Indication: BENIGN PROSTATIC HYPERPLASIA
     Route: 065

REACTIONS (7)
  - Sepsis [Unknown]
  - Bone marrow failure [Unknown]
  - Breast enlargement [Unknown]
  - Skin ulcer [Unknown]
  - Libido decreased [Unknown]
  - Erectile dysfunction [Unknown]
  - Hypersensitivity [Unknown]
